FAERS Safety Report 17479029 (Version 2)
Quarter: 2020Q2

REPORT INFORMATION
  Report Type: Spontaneous
  Country: US (occurrence: US)
  Receive Date: 20200228
  Receipt Date: 20200417
  Transmission Date: 20200713
  Serious: No
  Sender: FDA-Public Use
  Company Number: US-BAUSCH-BL-2020-004550

PATIENT
  Age: 53 Year
  Sex: Female
  Weight: 59.02 kg

DRUGS (1)
  1. OPCON-A [Suspect]
     Active Substance: NAPHAZOLINE HYDROCHLORIDE\PHENIRAMINE MALEATE
     Indication: EYE ALLERGY
     Dosage: INTRAOCULAR, FREQUENCY: AS NEEDED
     Route: 047

REACTIONS (2)
  - Drug ineffective [Unknown]
  - Product quality issue [Unknown]
